FAERS Safety Report 15009678 (Version 1)
Quarter: 2018Q2

REPORT INFORMATION
  Report Type: Spontaneous
  Country: US (occurrence: US)
  Receive Date: 20180614
  Receipt Date: 20180614
  Transmission Date: 20180711
  Serious: No
  Sender: FDA-Public Use
  Company Number: US-AUROBINDO-AUR-APU-2017-42291

PATIENT
  Sex: Male

DRUGS (1)
  1. OLANZAPINE 10MG [Suspect]
     Active Substance: OLANZAPINE
     Indication: INSOMNIA
     Dosage: 10 MG, ONCE A DAY AT BED TIME
     Route: 048

REACTIONS (2)
  - Overdose [Not Recovered/Not Resolved]
  - Asthenopia [Not Recovered/Not Resolved]
